FAERS Safety Report 7407752-7 (Version None)
Quarter: 2011Q2

REPORT INFORMATION
  Report Type: 
  Country: None (occurrence: None)
  Receive Date: 20110408
  Receipt Date: 20110408
  Transmission Date: 20111010
  Serious: Yes (Other)
  Sender: FDA-Public Use
  Company Number: None

PATIENT
  Age: 40 Year
  Sex: Male
  Weight: 95.2554 kg

DRUGS (2)
  1. OXYCONTIN [Suspect]
     Indication: NERVE INJURY
     Dosage: 40MG 4 TIMES DAILY PO
     Route: 048
     Dates: start: 20061101, end: 20110407
  2. OXYCONTIN [Suspect]
     Indication: PAIN
     Dosage: 40MG 4 TIMES DAILY PO
     Route: 048
     Dates: start: 20061101, end: 20110407

REACTIONS (3)
  - ABDOMINAL PAIN UPPER [None]
  - DRUG EFFECT DECREASED [None]
  - PRODUCT FORMULATION ISSUE [None]
